FAERS Safety Report 13026868 (Version 3)
Quarter: 2017Q3

REPORT INFORMATION
  Report Type: Report from Study
  Country: CO (occurrence: CO)
  Receive Date: 20161214
  Receipt Date: 20170727
  Transmission Date: 20171127
  Serious: Yes (Other)
  Sender: FDA-Public Use
  Company Number: CO-SA-2016SA223696

PATIENT
  Age: 32 Year
  Sex: Male
  Weight: 88 kg

DRUGS (1)
  1. LEMTRADA [Suspect]
     Active Substance: ALEMTUZUMAB
     Indication: MULTIPLE SCLEROSIS
     Route: 041
     Dates: start: 20160927, end: 20161001

REACTIONS (5)
  - Bacteriuria [Recovered/Resolved]
  - Dysuria [Unknown]
  - Haematuria [Recovered/Resolved]
  - Leukopenia [Recovered/Resolved]
  - Blood creatinine decreased [Recovered/Resolved]

NARRATIVE: CASE EVENT DATE: 20161128
